FAERS Safety Report 18134518 (Version 2)
Quarter: 2021Q4

REPORT INFORMATION
  Report Type: Spontaneous
  Country: US (occurrence: US)
  Receive Date: 20200811
  Receipt Date: 20211230
  Transmission Date: 20220303
  Serious: No
  Sender: FDA-Public Use
  Company Number: US-PFIZER INC-2020305899

PATIENT
  Age: 50 Year
  Sex: Female

DRUGS (2)
  1. PREMPRO [Suspect]
     Active Substance: ESTROGENS, CONJUGATED\MEDROXYPROGESTERONE ACETATE
     Indication: Hot flush
     Dosage: 1 DF, 1X/DAY (0.45-1.5 MG PER TABLET)
     Route: 048
     Dates: start: 20211203
  2. PREMPRO [Suspect]
     Active Substance: ESTROGENS, CONJUGATED\MEDROXYPROGESTERONE ACETATE
     Indication: Menopause

REACTIONS (4)
  - Discomfort [Unknown]
  - Condition aggravated [Unknown]
  - Feeling abnormal [Unknown]
  - Malaise [Unknown]
